FAERS Safety Report 6690036-2 (Version None)
Quarter: 2010Q2

REPORT INFORMATION
  Report Type: 
  Country: None (occurrence: None)
  Receive Date: 20100421
  Receipt Date: 20100412
  Transmission Date: 20101027
  Serious: Yes (Other)
  Sender: FDA-Public Use
  Company Number: PHEH2006US13310

PATIENT
  Sex: Male

DRUGS (3)
  1. ZOMETA [Suspect]
  2. WARFARIN SODIUM [Concomitant]
  3. THALIDOMIDE [Concomitant]

REACTIONS (12)
  - ABSCESS DRAINAGE [None]
  - ANXIETY [None]
  - BONE PAIN [None]
  - INJURY [None]
  - OSTEONECROSIS [None]
  - PAIN [None]
  - SUBCUTANEOUS ABSCESS [None]
  - SWELLING FACE [None]
  - TOOTH EXTRACTION [None]
  - TOOTHACHE [None]
  - VISION BLURRED [None]
  - VISUAL ACUITY REDUCED [None]
